FAERS Safety Report 8710916 (Version 5)
Quarter: 2012Q4

REPORT INFORMATION
  Report Type: 
  Country: GB (occurrence: GB)
  Receive Date: 20120807
  Receipt Date: 20121111
  Transmission Date: 20130627
  Serious: Yes (Life-Threatening, Hospitalization, Disabling, Other)
  Sender: FDA-Public Use
  Company Number: PHFR2012GB004317

PATIENT
  Age: 31 None
  Sex: Male

DRUGS (3)
  1. CLOZARIL [Suspect]
     Indication: SCHIZOPHRENIA
     Dosage: 375 mg
     Route: 048
     Dates: start: 2001, end: 20120710
  2. CLOZARIL [Suspect]
     Dates: start: 20121102
  3. HYOSCINE HYDROBROMIDE [Concomitant]
     Dosage: 150 ug, UNK
     Route: 048
     Dates: end: 20120710

REACTIONS (15)
  - Ear infection [Recovered/Resolved]
  - Brain abscess [Recovering/Resolving]
  - Meningioma [Recovering/Resolving]
  - Intracranial venous sinus thrombosis [Unknown]
  - Hemiparesis [Recovering/Resolving]
  - Brain neoplasm [Recovering/Resolving]
  - Disorientation [Recovering/Resolving]
  - Aphasia [Recovering/Resolving]
  - Coma [Recovered/Resolved]
  - Mental disorder [Recovering/Resolving]
  - Confusional state [Recovering/Resolving]
  - General physical health deterioration [Recovering/Resolving]
  - White blood cell count increased [Unknown]
  - Neutrophil count increased [Unknown]
  - Eosinophil count decreased [Unknown]
